FAERS Safety Report 15582960 (Version 1)
Quarter: 2018Q4

REPORT INFORMATION
  Report Type: Spontaneous
  Country: US (occurrence: US)
  Receive Date: 20181105
  Receipt Date: 20181105
  Transmission Date: 20190205
  Serious: No
  Sender: FDA-Public Use
  Company Number: None

PATIENT
  Age: 7 Year
  Sex: Female
  Weight: 18.9 kg

DRUGS (2)
  1. MONTELUKAST [Suspect]
     Active Substance: MONTELUKAST SODIUM
     Indication: HYPERSENSITIVITY
     Dosage: ?          QUANTITY:1 TABLET(S);?
     Route: 048
     Dates: start: 20180707, end: 20181018
  2. ZYRTEC [Concomitant]
     Active Substance: CETIRIZINE HYDROCHLORIDE

REACTIONS (3)
  - Anxiety [None]
  - Tic [None]
  - Depression [None]

NARRATIVE: CASE EVENT DATE: 20181017
